FAERS Safety Report 23763725 (Version 2)
Quarter: 2024Q2

REPORT INFORMATION
  Report Type: Spontaneous
  Country: JP (occurrence: JP)
  Receive Date: 20240419
  Receipt Date: 20240426
  Transmission Date: 20240716
  Serious: Yes (Hospitalization, Other)
  Sender: FDA-Public Use
  Company Number: JP-MLMSERVICE-20240409-PI019072-00117-1

PATIENT
  Age: 72 Year
  Sex: Male
  Weight: 44 kg

DRUGS (6)
  1. OXYCODONE HYDROCHLORIDE [Interacting]
     Active Substance: OXYCODONE HYDROCHLORIDE
     Indication: Proctalgia
     Dosage: 108 MILLIGRAM, DAILY (DOSE INCREASED)
     Route: 065
  2. OXYCODONE HYDROCHLORIDE [Interacting]
     Active Substance: OXYCODONE HYDROCHLORIDE
     Dosage: DOSE INCREASED
     Route: 065
  3. OXYCODONE HYDROCHLORIDE [Interacting]
     Active Substance: OXYCODONE HYDROCHLORIDE
     Dosage: 48 MILLIGRAM, DAILY (CONTINUOUS INFUSION PLUS BOLUS OF 1 HOUR QUANTITY AS A RESCUE DOSE)
     Route: 065
  4. DEXAMETHASONE [Interacting]
     Active Substance: DEXAMETHASONE
     Indication: Antiemetic supportive care
     Dosage: 9.9 MILLIGRAM
     Route: 042
  5. PALONOSETRON [Interacting]
     Active Substance: PALONOSETRON
     Indication: Antiemetic supportive care
     Dosage: 0.75 MILLIGRAM
     Route: 042
  6. FOSAPREPITANT [Interacting]
     Active Substance: FOSAPREPITANT
     Indication: Antiemetic supportive care
     Dosage: 150 MILLIGRAM
     Route: 042

REACTIONS (3)
  - Sedation complication [Recovered/Resolved]
  - Drug interaction [Recovered/Resolved]
  - Respiratory depression [Recovered/Resolved]
